FAERS Safety Report 7320611-3 (Version None)
Quarter: 2011Q1

REPORT INFORMATION
  Report Type: 
  Country: None (occurrence: None)
  Receive Date: 20110228
  Receipt Date: 20110221
  Transmission Date: 20110831
  Serious: Yes (Death)
  Sender: FDA-Public Use
  Company Number: NO-GENENTECH-314237

PATIENT

DRUGS (2)
  1. ACTIVASE [Suspect]
     Indication: PERIPHERAL ISCHAEMIA
  2. HEPARIN [Concomitant]
     Indication: PERIPHERAL ISCHAEMIA
     Dosage: 5000 IU, UNK

REACTIONS (1)
  - DEATH [None]
